FAERS Safety Report 6576657-6 (Version None)
Quarter: 2010Q1

REPORT INFORMATION
  Report Type: 
  Country: None (occurrence: None)
  Receive Date: 20100210
  Receipt Date: 20100128
  Transmission Date: 20100710
  Serious: Yes (Other)
  Sender: FDA-Public Use
  Company Number: US-WATSON-2010-01048

PATIENT
  Sex: Female
  Weight: 133 kg

DRUGS (2)
  1. TRELSTAR DEPOT [Suspect]
     Indication: BREAST CANCER FEMALE
     Dosage: 3.75 MG, ONCE A MONTH
     Route: 030
     Dates: start: 20080623, end: 20091223
  2. EXEMESTANE [Suspect]
     Indication: BREAST CANCER FEMALE
     Dosage: 25 MG, DAILY
     Route: 048
     Dates: start: 20080806, end: 20100114

REACTIONS (1)
  - OBESITY [None]
